FAERS Safety Report 5678094-5 (Version None)
Quarter: 2008Q1

REPORT INFORMATION
  Report Type: 
  Country: None (occurrence: None)
  Receive Date: 20080319
  Receipt Date: 20080303
  Transmission Date: 20080703
  Serious: Yes (Hospitalization)
  Sender: FDA-Public Use
  Company Number: 230003M08FIN

PATIENT
  Age: 47 Year
  Sex: Male

DRUGS (2)
  1. REBIF [Suspect]
     Dates: start: 20080101
  2. BACLOFEN [Concomitant]

REACTIONS (2)
  - DIALYSIS [None]
  - THROMBOTIC THROMBOCYTOPENIC PURPURA [None]
